FAERS Safety Report 4889422-2 (Version None)
Quarter: 2006Q1

REPORT INFORMATION
  Report Type: 
  Country: None (occurrence: None)
  Receive Date: 20060124
  Receipt Date: 20050831
  Transmission Date: 20060701
  Serious: Yes (Death, Life-Threatening, Hospitalization)
  Sender: FDA-Public Use
  Company Number: PHHO2005DE13674

PATIENT
  Age: 42 Year
  Sex: Female

DRUGS (25)
  1. CYCLOSPORINE [Suspect]
     Indication: LUNG TRANSPLANT
     Route: 048
     Dates: start: 20050527
  2. PIPERACILLIN [Suspect]
     Indication: PNEUMONIA
     Dosage: 2 G, TID
     Dates: start: 20050712, end: 20050721
  3. SULBACTAM [Suspect]
     Indication: PNEUMONIA
     Dosage: 0.5 G, TID
     Dates: start: 20050712, end: 20050721
  4. MYCOPHENOLATE MOFETIL [Suspect]
     Indication: LUNG TRANSPLANT
     Dosage: 1000 MG, BID
     Route: 048
     Dates: start: 20050527, end: 20050713
  5. PREDNISOLONE [Suspect]
     Dosage: 10 MG, QD
     Route: 048
     Dates: start: 20050528
  6. PREDNISOLONE [Suspect]
     Dosage: 25 MG, QD
     Route: 042
     Dates: start: 20050528, end: 20050723
  7. PREDNISOLONE [Suspect]
     Dosage: 25 MG, QD
     Route: 048
     Dates: start: 20050720
  8. MEROPENEM [Concomitant]
  9. VANCOMYCIN [Concomitant]
  10. METRONIDAZOLE [Concomitant]
  11. HYDROCORTISONE [Suspect]
     Dosage: 100 MG, UNK
     Route: 042
     Dates: start: 20050723
  12. ACYCLOVIR [Concomitant]
  13. CASPOFUNGIN [Concomitant]
  14. COTRIM [Concomitant]
  15. ITRACONAZOLE [Concomitant]
  16. RANITIDINE HCL [Concomitant]
  17. VIGANTOLETTEN [Concomitant]
  18. CALCIUM GLUCONATE [Concomitant]
  19. EISEN-II-SULFAT [Concomitant]
  20. AMPHO-MORONAL [Concomitant]
  21. ALBUTEROL [Concomitant]
  22. VORICONAZOLE [Concomitant]
  23. DACLIZUMAB [Suspect]
     Dosage: BLINDED
     Dates: start: 20050526, end: 20050630
  24. ACETYLCYSTEINE [Concomitant]
     Dates: start: 20050715
  25. DROTRECOGIN ALFA [Concomitant]

REACTIONS (13)
  - CHILLS [None]
  - CLOSTRIDIAL INFECTION [None]
  - CLOSTRIDIUM COLITIS [None]
  - COUGH [None]
  - DYSPNOEA [None]
  - GRAFT DYSFUNCTION [None]
  - PERITONITIS [None]
  - PNEUMONIA [None]
  - PYREXIA [None]
  - RESPIRATORY FAILURE [None]
  - SEPSIS [None]
  - TACHYPNOEA [None]
  - TRACHEOSTOMY [None]
